FAERS Safety Report 5864502-3 (Version None)
Quarter: 2008Q3

REPORT INFORMATION
  Report Type: 
  Country: None (occurrence: None)
  Receive Date: 20080829
  Receipt Date: 20080707
  Transmission Date: 20090109
  Serious: No
  Sender: FDA-Public Use
  Company Number: US-ABBOTT-08P-163-0461049-00

PATIENT
  Sex: Female

DRUGS (1)
  1. SIMCOR [Suspect]
     Indication: DRUG USE FOR UNKNOWN INDICATION
     Dosage: 500/20 MG DAILY
     Route: 048
     Dates: start: 20080614

REACTIONS (7)
  - ARTHROPOD BITE [None]
  - EYE SWELLING [None]
  - FLUSHING [None]
  - LIP SWELLING [None]
  - PRURITUS [None]
  - RASH [None]
  - URTICARIA [None]
